FAERS Safety Report 12407097 (Version 1)
Quarter: 2016Q2

REPORT INFORMATION
  Report Type: Spontaneous
  Country: US (occurrence: None)
  Receive Date: 20160525
  Receipt Date: 20160525
  Transmission Date: 20160815
  Serious: No
  Sender: FDA-Public Use
  Company Number: None

PATIENT
  Age: 46 Year
  Sex: Male
  Weight: 84.91 kg

DRUGS (2)
  1. FENTANYL. [Suspect]
     Active Substance: FENTANYL
     Indication: PAIN
     Route: 062
     Dates: start: 20060216, end: 20160511
  2. FENTANYL. [Suspect]
     Active Substance: FENTANYL
     Indication: JOINT INJURY
     Route: 062
     Dates: start: 20060216, end: 20160511

REACTIONS (2)
  - Drug effect decreased [None]
  - Product substitution issue [None]
